FAERS Safety Report 6575170-X (Version None)
Quarter: 2010Q1

REPORT INFORMATION
  Report Type: 
  Country: None (occurrence: None)
  Receive Date: 20100209
  Receipt Date: 20100201
  Transmission Date: 20100710
  Serious: Yes (Other)
  Sender: FDA-Public Use
  Company Number: FR-ASTRAZENECA-2010SE05025

PATIENT
  Age: 70 Year
  Sex: Female
  Weight: 35 kg

DRUGS (2)
  1. ENTOCORT EC [Suspect]
     Indication: CROHN'S DISEASE
     Route: 048
     Dates: start: 20030101
  2. ENTOCORT EC [Suspect]
     Route: 048
     Dates: end: 20050101

REACTIONS (1)
  - OSTEOPOROSIS [None]
